FAERS Safety Report 20451094 (Version 1)
Quarter: 2022Q1

REPORT INFORMATION
  Report Type: Spontaneous
  Country: US (occurrence: None)
  Receive Date: 20220209
  Receipt Date: 20220209
  Transmission Date: 20220424
  Serious: Yes (Death, Hospitalization)
  Sender: FDA-Public Use
  Company Number: None

PATIENT
  Age: 41 Year
  Sex: Female

DRUGS (1)
  1. AMBRISENTAN [Suspect]
     Active Substance: AMBRISENTAN
     Indication: Pulmonary arterial hypertension
     Dosage: FREQUENCY : DAILY;?
     Route: 048
     Dates: end: 20220126

REACTIONS (8)
  - Condition aggravated [None]
  - Right ventricular failure [None]
  - Hypercapnia [None]
  - Fluid balance negative [None]
  - Hypoxia [None]
  - Respiratory failure [None]
  - Acidosis [None]
  - Cardiac arrest [None]

NARRATIVE: CASE EVENT DATE: 20220126
